FAERS Safety Report 23822209 (Version 2)
Quarter: 2024Q2

REPORT INFORMATION
  Report Type: Spontaneous
  Country: IT (occurrence: IT)
  Receive Date: 20240506
  Receipt Date: 20240613
  Transmission Date: 20240716
  Serious: Yes (Hospitalization, Other)
  Sender: FDA-Public Use
  Company Number: None

PATIENT
  Age: 58 Year
  Sex: Male

DRUGS (2)
  1. BROMAZEPAM [Suspect]
     Active Substance: BROMAZEPAM
     Indication: Intentional self-injury
     Dosage: TAKING 2.5 MG/ML OF BROMAZEPAM
     Route: 048
     Dates: start: 20240313, end: 20240313
  2. ALPRAZOLAM [Suspect]
     Active Substance: ALPRAZOLAM
     Indication: Intentional self-injury
     Dosage: TAKING 13 TABLETS OF ALPRAZOLAM OF 1 MG
     Route: 048
     Dates: start: 20240313, end: 20240313

REACTIONS (4)
  - Toxicity to various agents [Unknown]
  - Confusional state [Unknown]
  - Abdominal pain [Unknown]
  - Drug abuse [Recovered/Resolved]

NARRATIVE: CASE EVENT DATE: 20240313
